FAERS Safety Report 12253392 (Version 2)
Quarter: 2016Q2

REPORT INFORMATION
  Report Type: Spontaneous
  Country: PL (occurrence: PL)
  Receive Date: 20160411
  Receipt Date: 20160420
  Transmission Date: 20160815
  Serious: Yes (Death, Other)
  Sender: FDA-Public Use
  Company Number: PHHY2016PL045996

PATIENT
  Age: 53 Year
  Sex: Female

DRUGS (4)
  1. CAPECITABINE. [Suspect]
     Active Substance: CAPECITABINE
     Indication: PRODUCT USED FOR UNKNOWN INDICATION
     Dosage: UNK
     Route: 065
     Dates: start: 201005
  2. CAPECITABINE. [Suspect]
     Active Substance: CAPECITABINE
     Dosage: 75 % DOSE
     Route: 065
     Dates: start: 201005, end: 201110
  3. LAPATINIB [Suspect]
     Active Substance: LAPATINIB
     Dosage: UNK
     Route: 065
     Dates: start: 201005, end: 201110
  4. LAPATINIB [Suspect]
     Active Substance: LAPATINIB
     Indication: BREAST CANCER
     Dosage: UNK
     Route: 065
     Dates: start: 201005

REACTIONS (4)
  - Death [Fatal]
  - Malignant neoplasm progression [Unknown]
  - Palmar-plantar erythrodysaesthesia syndrome [Recovered/Resolved]
  - Metastases to central nervous system [Unknown]

NARRATIVE: CASE EVENT DATE: 201110
